FAERS Safety Report 7391346-6 (Version None)
Quarter: 2011Q1

REPORT INFORMATION
  Report Type: 
  Country: None (occurrence: None)
  Receive Date: 20110324
  Receipt Date: 20110310
  Transmission Date: 20110831
  Serious: Yes (Other)
  Sender: FDA-Public Use
  Company Number: 2010000528

PATIENT
  Age: 44 Year
  Sex: Male
  Weight: 95 kg

DRUGS (21)
  1. GLYCEROL 2.6% [Concomitant]
  2. NOVAMIN (PROCHLORPERAZINE) [Concomitant]
  3. PRIMPERAN TAB [Concomitant]
  4. ISOSORBIDE (ISOSORBIDE) [Concomitant]
  5. MUCOSTA (REBAMIPIDE) [Concomitant]
  6. ADONA (CARBAZOCHROME SODIUM) [Concomitant]
  7. GASMOTIN (MOSAPRIDE CITRATE) [Concomitant]
  8. PREDNISOLONE [Concomitant]
  9. ERLOTINIB (ERLOTINIB) (TABLET) (ERLOTINIB) [Suspect]
     Indication: LUNG ADENOCARCINOMA
     Dosage: (150 MG,QD),ORAL ; (100 MG,QD),ORAL
     Route: 048
     Dates: start: 20080522, end: 20080902
  10. ERLOTINIB (ERLOTINIB) (TABLET) (ERLOTINIB) [Suspect]
     Indication: LUNG ADENOCARCINOMA
     Dosage: (150 MG,QD),ORAL ; (100 MG,QD),ORAL
     Route: 048
     Dates: start: 20080711, end: 20080902
  11. IRSOGLADINE MALEATE (IRSOGLADINE MALEATE) [Concomitant]
  12. SOLITA-TI [Concomitant]
  13. FAMOTIDINE [Concomitant]
  14. ACETAMINOPHEN [Concomitant]
  15. RABEPRAZOLE SODIUM [Concomitant]
  16. BIOFERMIN (BIOFERMIN) [Concomitant]
  17. LOXOPROFEN (LOXOPROFEN) [Concomitant]
  18. TRANSAMIN (TRANEXAMIC ACID) [Concomitant]
  19. PREDNISOLONE [Concomitant]
  20. RINDERON (BETAMETHASONE) [Concomitant]
  21. CODEINE PHOSPHATE (CODEINE PHOSPHATE) [Concomitant]

REACTIONS (3)
  - MENINGITIS [None]
  - VOMITING [None]
  - RASH [None]
